FAERS Safety Report 12563349 (Version 2)
Quarter: 2016Q3

REPORT INFORMATION
  Report Type: Report from Study
  Country: AR (occurrence: AR)
  Receive Date: 20160715
  Receipt Date: 20160818
  Transmission Date: 20161109
  Serious: Yes (Death, Hospitalization)
  Sender: FDA-Public Use
  Company Number: AR-ABBVIE-16P-007-1676871-00

PATIENT
  Age: 54 Year
  Sex: Male

DRUGS (1)
  1. ZEMPLAR [Suspect]
     Active Substance: PARICALCITOL
     Indication: HYPERPARATHYROIDISM SECONDARY
     Route: 042
     Dates: start: 20130101

REACTIONS (4)
  - Pulmonary oedema [Fatal]
  - Bronchospasm [Fatal]
  - Pleural effusion [Recovering/Resolving]
  - Lung infection [Fatal]

NARRATIVE: CASE EVENT DATE: 20160615
